FAERS Safety Report 5288101-X (Version None)
Quarter: 2007Q2

REPORT INFORMATION
  Report Type: 
  Country: None (occurrence: None)
  Receive Date: 20070402
  Receipt Date: 20070402
  Transmission Date: 20071010
  Serious: Yes (Other)
  Sender: FDA-Public Use
  Company Number: None

PATIENT
  Age: 62 Year
  Sex: Male
  Weight: 97.5234 kg

DRUGS (1)
  1. PRILOSEC [Suspect]
     Indication: DYSPEPSIA
     Dosage: 1 ONCE A DAY PO
     Route: 048
     Dates: start: 20070319, end: 20070326

REACTIONS (3)
  - BURNING SENSATION [None]
  - RASH GENERALISED [None]
  - RASH PRURITIC [None]
